FAERS Safety Report 7973504-2 (Version None)
Quarter: 2011Q4

REPORT INFORMATION
  Report Type: 
  Country: None (occurrence: None)
  Receive Date: 20111122
  Receipt Date: 20110624
  Transmission Date: 20120403
  Serious: No
  Sender: FDA-Public Use
  Company Number: PHHY2011US27483

PATIENT
  Age: 29 Year
  Sex: Female

DRUGS (8)
  1. GILENYA [Suspect]
     Indication: MULTIPLE SCLEROSIS
     Dosage: 0.5 MG, DAILY, ORAL
     Route: 048
     Dates: start: 20110316
  2. FLONASE [Concomitant]
  3. VITAMIN D [Concomitant]
  4. ALBUTEROL [Concomitant]
  5. ASTELIN [Concomitant]
  6. ZOLOFT [Concomitant]
  7. ZYRTEC [Concomitant]
  8. PROVIGIL [Concomitant]

REACTIONS (3)
  - DYSGEUSIA [None]
  - HYPOAESTHESIA ORAL [None]
  - FEELING COLD [None]
